FAERS Safety Report 23633193 (Version 1)
Quarter: 2024Q1

REPORT INFORMATION
  Report Type: Spontaneous
  Country: CN (occurrence: CN)
  Receive Date: 20240314
  Receipt Date: 20240314
  Transmission Date: 20240409
  Serious: Yes (Other)
  Sender: FDA-Public Use
  Company Number: CN-JNJFOC-20240328830

PATIENT
  Age: 44 Year
  Sex: Male

DRUGS (1)
  1. INVOKANA [Suspect]
     Active Substance: CANAGLIFLOZIN
     Indication: Diabetes mellitus
     Route: 048
     Dates: start: 20240302, end: 20240303

REACTIONS (1)
  - Fournier^s gangrene [Recovering/Resolving]

NARRATIVE: CASE EVENT DATE: 20240303
